FAERS Safety Report 8300760-3 (Version None)
Quarter: 2012Q2

REPORT INFORMATION
  Report Type: 
  Country: None (occurrence: None)
  Receive Date: 20120420
  Receipt Date: 20120412
  Transmission Date: 20120825
  Serious: Yes (Other)
  Sender: FDA-Public Use
  Company Number: US-RB-037877-12

PATIENT
  Age: 70 Year
  Sex: Male

DRUGS (3)
  1. MUCINEX D [Suspect]
     Indication: NASAL CONGESTION
     Dosage: CONSUMER USED PRODUCT OVER THE LAST 6-7 MONTHS AS NEEDED 1 TAB AT NIGHT
     Route: 048
  2. MUCINEX D [Suspect]
     Route: 048
     Dates: start: 20120326, end: 20120404
  3. AMBIEN CR [Concomitant]
     Indication: PRODUCT USED FOR UNKNOWN INDICATION
     Dosage: DAILY AT BEDTIME

REACTIONS (3)
  - LIP DRY [None]
  - EPISTAXIS [None]
  - INCORRECT DRUG ADMINISTRATION DURATION [None]
